FAERS Safety Report 5186604-X (Version None)
Quarter: 2006Q4

REPORT INFORMATION
  Report Type: 
  Country: None (occurrence: None)
  Receive Date: 20061220
  Receipt Date: 20060113
  Transmission Date: 20070319
  Serious: No
  Sender: FDA-Public Use
  Company Number: US-AMGEN-US164761

PATIENT
  Sex: Female

DRUGS (4)
  1. ENBREL [Suspect]
     Indication: PSORIASIS
     Route: 058
     Dates: start: 20050601, end: 20060101
  2. SYNTHROID [Concomitant]
     Route: 065
  3. SINGULAIR [Concomitant]
     Route: 065
  4. EFFEXOR [Concomitant]
     Route: 065

REACTIONS (1)
  - LYMPHADENOPATHY [None]
